FAERS Safety Report 16168987 (Version 1)
Quarter: 2019Q2

REPORT INFORMATION
  Report Type: Spontaneous
  Country: US (occurrence: US)
  Receive Date: 20190405
  Receipt Date: 20190405
  Transmission Date: 20190711
  Serious: Yes (Hospitalization)
  Sender: FDA-Public Use
  Company Number: None

PATIENT

DRUGS (5)
  1. VANCOMYCIN [Concomitant]
     Active Substance: VANCOMYCIN
     Dates: start: 20190405
  2. HUMIRA [Suspect]
     Active Substance: ADALIMUMAB
     Indication: CROHN^S DISEASE
     Dosage: ?          OTHER FREQUENCY:DAY 1 80MG DAY 15;?
     Route: 058
     Dates: start: 20190313
  3. VITAMIN D 50,000 [Concomitant]
     Dates: start: 20190118
  4. PREDNISONE. [Concomitant]
     Active Substance: PREDNISONE
     Dates: start: 20190405
  5. IRON 325 [Concomitant]
     Dates: start: 20190405

REACTIONS (4)
  - Abdominal pain [None]
  - Diarrhoea [None]
  - Condition aggravated [None]
  - Weight abnormal [None]
